FAERS Safety Report 6450503-3 (Version None)
Quarter: 2009Q4

REPORT INFORMATION
  Report Type: 
  Country: None (occurrence: None)
  Receive Date: 20091123
  Receipt Date: 20091110
  Transmission Date: 20100525
  Serious: Yes (Other)
  Sender: FDA-Public Use
  Company Number: PHHY2009DE46793

PATIENT
  Sex: Male

DRUGS (1)
  1. AFINITOR [Suspect]
     Indication: RENAL CELL CARCINOMA
     Dosage: UNK
     Dates: start: 20090911

REACTIONS (4)
  - BLOOD CREATININE INCREASED [None]
  - CIRCULATORY COLLAPSE [None]
  - HYPERTENSION [None]
  - RENAL FAILURE [None]
